FAERS Safety Report 16601876 (Version 5)
Quarter: 2021Q3

REPORT INFORMATION
  Report Type: Report from Study
  Country: GB (occurrence: GB)
  Receive Date: 20190719
  Receipt Date: 20210712
  Transmission Date: 20211014
  Serious: Yes (Other)
  Sender: FDA-Public Use
  Company Number: PHHY2018GB188370

PATIENT
  Age: 44 Year
  Sex: Male
  Weight: 84.1 kg

DRUGS (5)
  1. ERELZI [Suspect]
     Active Substance: ETANERCEPT-SZZS
     Indication: ANKYLOSING SPONDYLITIS
     Dosage: 50 MG, QW
     Route: 058
     Dates: start: 20181015, end: 20190408
  2. PARACETAMOL [Concomitant]
     Active Substance: ACETAMINOPHEN
     Indication: ANKYLOSING SPONDYLITIS
     Dosage: UNK
     Route: 048
     Dates: start: 2013
  3. METHOTREXATE. [Concomitant]
     Active Substance: METHOTREXATE
     Indication: ANKYLOSING SPONDYLITIS
     Dosage: UNK
     Route: 048
     Dates: start: 2002, end: 20181029
  4. TRAMADOL. [Concomitant]
     Active Substance: TRAMADOL
     Indication: ANKYLOSING SPONDYLITIS
     Dosage: 100 MG, TID
     Route: 048
     Dates: start: 2013
  5. PREGABALIN. [Concomitant]
     Active Substance: PREGABALIN
     Indication: ANKYLOSING SPONDYLITIS
     Dosage: 75 MG, BID
     Route: 048
     Dates: start: 2013

REACTIONS (11)
  - Crohn^s disease [Not Recovered/Not Resolved]
  - Arthralgia [Not Recovered/Not Resolved]
  - Pelvic cyst [Unknown]
  - Lung disorder [Unknown]
  - Ankylosing spondylitis [Not Recovered/Not Resolved]
  - Cellulitis [Not Recovered/Not Resolved]
  - Condition aggravated [Not Recovered/Not Resolved]
  - Drug ineffective [Not Recovered/Not Resolved]
  - Inflammatory marker increased [Not Recovered/Not Resolved]
  - Joint swelling [Not Recovered/Not Resolved]
  - Bladder diverticulum [Not Recovered/Not Resolved]

NARRATIVE: CASE EVENT DATE: 20181114
